FAERS Safety Report 6850421-2 (Version None)
Quarter: 2010Q3

REPORT INFORMATION
  Report Type: 
  Country: None (occurrence: None)
  Receive Date: 20100716
  Receipt Date: 20071016
  Transmission Date: 20110219
  Serious: No
  Sender: FDA-Public Use
  Company Number: US-PFIZER INC-2007088786

PATIENT
  Age: 37 Year
  Sex: Female
  Weight: 68.2 kg

DRUGS (1)
  1. CHANTIX [Suspect]
     Indication: SMOKING CESSATION THERAPY
     Dates: start: 20070901

REACTIONS (7)
  - ABNORMAL DREAMS [None]
  - ANGER [None]
  - EMOTIONAL DISORDER [None]
  - IRRITABILITY [None]
  - NAUSEA [None]
  - RESTLESSNESS [None]
  - SLEEP DISORDER [None]
